FAERS Safety Report 10771375 (Version 1)
Quarter: 2015Q1

REPORT INFORMATION
  Report Type: Spontaneous
  Country: BR (occurrence: BR)
  Receive Date: 20150206
  Receipt Date: 20150206
  Transmission Date: 20150721
  Serious: Yes (Life-Threatening)
  Sender: FDA-Public Use
  Company Number: BR-ABBVIE-15P-020-1343898-00

PATIENT
  Age: 23 Year
  Sex: Female
  Weight: 69 kg

DRUGS (1)
  1. DEPAKENE [Suspect]
     Active Substance: VALPROIC ACID
     Indication: EPILEPSY
     Route: 048
     Dates: start: 201501, end: 20150201

REACTIONS (8)
  - Abdominal pain upper [Not Recovered/Not Resolved]
  - Swelling [Not Recovered/Not Resolved]
  - Stress [Unknown]
  - Gastric disorder [Unknown]
  - Suicide attempt [Recovered/Resolved]
  - Overdose [Recovered/Resolved]
  - Headache [Not Recovered/Not Resolved]
  - Feeding disorder [Not Recovered/Not Resolved]

NARRATIVE: CASE EVENT DATE: 20150131
